FAERS Safety Report 25802554 (Version 1)
Quarter: 2025Q3

REPORT INFORMATION
  Report Type: Spontaneous
  Country: KR (occurrence: KR)
  Receive Date: 20250915
  Receipt Date: 20250915
  Transmission Date: 20251020
  Serious: Yes (Hospitalization)
  Sender: MYLAN
  Company Number: KR-MYLANLABS-2025M1076611

PATIENT
  Sex: Male
  Weight: 50 kg

DRUGS (17)
  1. LIPITOR [Suspect]
     Active Substance: ATORVASTATIN CALCIUM
     Indication: Cardiac failure
     Dosage: 1 DOSAGE FORM, QD
     Dates: start: 20221111, end: 20230310
  2. LIPITOR [Suspect]
     Active Substance: ATORVASTATIN CALCIUM
  3. ASPIRIN\CLOPIDOGREL BISULFATE [Suspect]
     Active Substance: ASPIRIN\CLOPIDOGREL BISULFATE
     Indication: Cardiac failure
     Dosage: 1 DOSAGE FORM, QD
     Dates: start: 20221121, end: 20230310
  4. ASPIRIN\CLOPIDOGREL BISULFATE [Suspect]
     Active Substance: ASPIRIN\CLOPIDOGREL BISULFATE
  5. FEXUPRAZAN [Suspect]
     Active Substance: FEXUPRAZAN
     Indication: Cardiac failure
     Dosage: 1 DOSAGE FORM, QD
     Dates: start: 20230202, end: 20230310
  6. FEXUPRAZAN [Suspect]
     Active Substance: FEXUPRAZAN
  7. FUROSEMIDE [Suspect]
     Active Substance: FUROSEMIDE
     Indication: Cardiac failure
     Dosage: 0.5 DOSAGE FORM, QD
     Dates: start: 20220727, end: 20230310
  8. FUROSEMIDE [Suspect]
     Active Substance: FUROSEMIDE
  9. ISOSORBIDE DINITRATE [Suspect]
     Active Substance: ISOSORBIDE DINITRATE
     Indication: Cardiac failure
     Dosage: 1 DOSAGE FORM, QD (DILUTE)
     Dates: start: 20221113, end: 20230310
  10. ISOSORBIDE DINITRATE [Suspect]
     Active Substance: ISOSORBIDE DINITRATE
  11. LOSARTAN POTASSIUM [Suspect]
     Active Substance: LOSARTAN POTASSIUM
     Indication: Cardiac failure
     Dosage: 1 DOSAGE FORM, QD
     Dates: start: 20230202, end: 20230310
  12. LOSARTAN POTASSIUM [Suspect]
     Active Substance: LOSARTAN POTASSIUM
  13. NICORANDIL [Suspect]
     Active Substance: NICORANDIL
     Indication: Cardiac failure
     Dosage: 1 DOSAGE FORM, QD
     Dates: start: 20221112, end: 20230310
  14. NICORANDIL [Suspect]
     Active Substance: NICORANDIL
  15. SPIRONOLACTONE [Suspect]
     Active Substance: SPIRONOLACTONE
     Indication: Cardiac failure
     Dates: start: 20220727, end: 20230310
  16. SPIRONOLACTONE [Suspect]
     Active Substance: SPIRONOLACTONE
  17. TRIMETAZIDINE DIHYDROCHLORIDE [Suspect]
     Active Substance: TRIMETAZIDINE DIHYDROCHLORIDE
     Indication: Cardiac failure
     Dates: start: 20221112, end: 20230305

REACTIONS (4)
  - Acute kidney injury [Recovering/Resolving]
  - Pruritus [Recovering/Resolving]
  - Rash [Recovering/Resolving]
  - Urticaria [Recovering/Resolving]

NARRATIVE: CASE EVENT DATE: 20230306
